FAERS Safety Report 10783777 (Version 1)
Quarter: 2015Q1

REPORT INFORMATION
  Report Type: Spontaneous
  Country: DK (occurrence: DK)
  Receive Date: 20150210
  Receipt Date: 20150210
  Transmission Date: 20150721
  Serious: Yes (Hospitalization)
  Sender: FDA-Public Use
  Company Number: DK-WATSON-2015-01433

PATIENT
  Age: 60 Year
  Sex: Female

DRUGS (2)
  1. METRONIDAZOLE (UNKNOWN) [Suspect]
     Active Substance: BISMUTH SUBSALICYLATE\METRONIDAZOLE\TETRACYCLINE HYDROCHLORIDE
     Indication: DIVERTICULITIS
     Dosage: 500 MG, TID
     Route: 048
     Dates: start: 20150122, end: 20150126
  2. IMADRAX [Concomitant]
     Active Substance: AMOXICILLIN
     Indication: DIVERTICULITIS
     Dosage: UNK
     Route: 048
     Dates: start: 20150122, end: 20150126

REACTIONS (2)
  - Myalgia [Not Recovered/Not Resolved]
  - Dysgeusia [Not Recovered/Not Resolved]

NARRATIVE: CASE EVENT DATE: 20150124
